FAERS Safety Report 15242945 (Version 1)
Quarter: 2018Q3

REPORT INFORMATION
  Report Type: Spontaneous
  Country: GB (occurrence: GB)
  Receive Date: 20180806
  Receipt Date: 20180806
  Transmission Date: 20181010
  Serious: Yes (Other)
  Sender: FDA-Public Use
  Company Number: GB-DRREDDYS-GER/UKI/18/0102785

PATIENT
  Age: 29 Year
  Sex: Female
  Weight: 89.81 kg

DRUGS (1)
  1. FEXOFENADINE [Suspect]
     Active Substance: FEXOFENADINE\FEXOFENADINE HYDROCHLORIDE
     Indication: URTICARIA CHRONIC
     Route: 048
     Dates: start: 20161029, end: 20180517

REACTIONS (3)
  - Peripheral swelling [Unknown]
  - Thirst [Unknown]
  - Abnormal weight gain [Unknown]
